FAERS Safety Report 5513438-6 (Version None)
Quarter: 2007Q4

REPORT INFORMATION
  Report Type: 
  Country: None (occurrence: None)
  Receive Date: 20071108
  Receipt Date: 20071024
  Transmission Date: 20080405
  Serious: Yes (Hospitalization)
  Sender: FDA-Public Use
  Company Number: MEDI-0006017

PATIENT
  Age: 3 Month
  Sex: Female
  Weight: 3.2 kg

DRUGS (2)
  1. SYNAGIS [Suspect]
     Indication: ANTIVIRAL PROPHYLAXIS
     Dates: start: 20061023, end: 20061108
  2. SYNAGIS [Suspect]
     Indication: ANTIVIRAL PROPHYLAXIS
     Dates: start: 20061023

REACTIONS (1)
  - RESPIRATORY TRACT INFECTION [None]
